FAERS Safety Report 19377003 (Version 1)
Quarter: 2021Q2

REPORT INFORMATION
  Report Type: Spontaneous
  Country: BR (occurrence: BR)
  Receive Date: 20210604
  Receipt Date: 20210604
  Transmission Date: 20210717
  Serious: Yes (Other)
  Sender: FDA-Public Use
  Company Number: BR-TAKEDA-2021TUS035163

PATIENT
  Sex: Male
  Weight: 99 kg

DRUGS (1)
  1. VENVANSE [Suspect]
     Active Substance: LISDEXAMFETAMINE DIMESYLATE
     Indication: ATTENTION DEFICIT HYPERACTIVITY DISORDER
     Dosage: 1 DOSAGE FORM, QD
     Route: 065
     Dates: start: 2019, end: 202011

REACTIONS (5)
  - Hallucination [Unknown]
  - Arthralgia [Unknown]
  - Adverse drug reaction [Unknown]
  - Motor dysfunction [Unknown]
  - COVID-19 [Unknown]

NARRATIVE: CASE EVENT DATE: 2020
